FAERS Safety Report 4805883-9 (Version None)
Quarter: 2005Q4

REPORT INFORMATION
  Report Type: 
  Country: None (occurrence: None)
  Receive Date: 20051018
  Receipt Date: 20051007
  Transmission Date: 20060501
  Serious: Yes (Hospitalization)
  Sender: FDA-Public Use
  Company Number: TPA2005A00941

PATIENT
  Age: 54 Year
  Sex: Female
  Weight: 97.977 kg

DRUGS (5)
  1. ACTOS [Suspect]
     Indication: DIABETES MELLITUS
     Dosage: SEE IMAGE, PER ORAL
     Route: 048
     Dates: start: 20050201, end: 20050803
  2. ACTOS [Suspect]
     Indication: DIABETES MELLITUS
     Dosage: SEE IMAGE, PER ORAL
     Route: 048
     Dates: start: 20050803, end: 20050810
  3. LIPITOR [Concomitant]
  4. DIOVAN/HCT (VALSARTAN) [Concomitant]
  5. AMARYL [Concomitant]

REACTIONS (6)
  - BACTERIA URINE [None]
  - BLOOD GLUCOSE INCREASED [None]
  - BODY TEMPERATURE INCREASED [None]
  - HEPATITIS [None]
  - NAUSEA [None]
  - WHITE BLOOD CELLS URINE [None]
